FAERS Safety Report 4663685-0 (Version None)
Quarter: 2005Q2

REPORT INFORMATION
  Report Type: 
  Country: None (occurrence: None)
  Receive Date: 20050517
  Receipt Date: 20050509
  Transmission Date: 20051028
  Serious: Yes (Death)
  Sender: FDA-Public Use
  Company Number: 05-02-0164

PATIENT
  Age: 44 Year
  Sex: Male

DRUGS (1)
  1. CLOZAPINE [Suspect]
     Indication: SCHIZOPHRENIA
     Dosage: 25-700MG QD ORAL
     Route: 048
     Dates: start: 20020301, end: 20050101

REACTIONS (5)
  - ABDOMINAL DISTENSION [None]
  - DRUG LEVEL ABOVE THERAPEUTIC [None]
  - FAECALOMA [None]
  - FALL [None]
  - LIVER DISORDER [None]
